FAERS Safety Report 13232862 (Version 2)
Quarter: 2017Q1

REPORT INFORMATION
  Report Type: Report from Study
  Country: None (occurrence: US)
  Receive Date: 20170214
  Receipt Date: 20170302
  Transmission Date: 20170428
  Serious: Yes (Hospitalization, Other)
  Sender: FDA-Public Use
  Company Number: US-ABBVIE-17K-163-1869923-00

PATIENT
  Age: 49 Year
  Sex: Female

DRUGS (3)
  1. HUMIRA [Suspect]
     Active Substance: ADALIMUMAB
     Dosage: MAINTENANCE DOSE
     Route: 058
     Dates: start: 201702
  2. HUMIRA [Suspect]
     Active Substance: ADALIMUMAB
     Indication: CROHN^S DISEASE
     Dosage: DAY 1
     Route: 058
     Dates: start: 20170202, end: 20170202
  3. HUMIRA [Suspect]
     Active Substance: ADALIMUMAB
     Dosage: DAY 15
     Route: 058
     Dates: start: 20170216, end: 20170216

REACTIONS (5)
  - Nausea [Unknown]
  - Abdominal pain [Unknown]
  - Diarrhoea [Unknown]
  - Malaise [Unknown]
  - Small intestinal obstruction [Recovering/Resolving]

NARRATIVE: CASE EVENT DATE: 201702
